FAERS Safety Report 4275063-7 (Version None)
Quarter: 2004Q1

REPORT INFORMATION
  Report Type: 
  Country: None (occurrence: None)
  Receive Date: 20040116
  Receipt Date: 20030915
  Transmission Date: 20041129
  Serious: Yes (Hospitalization)
  Sender: FDA-Public Use
  Company Number: M2003.6618

PATIENT
  Age: 53 Year
  Sex: Female

DRUGS (8)
  1. FUROSEMIDE [Suspect]
     Indication: ATRIAL FIBRILLATION
  2. DIGOXIN [Concomitant]
  3. AMIODARONE [Concomitant]
  4. PHENOXMETHYLPENICILLIN POTASSIUM [Concomitant]
  5. AMILORIDE [Concomitant]
  6. METOPROLOL [Concomitant]
  7. IRON [Concomitant]
  8. WARFARIN SODIUM [Concomitant]

REACTIONS (2)
  - DYSPNOEA [None]
  - PALPITATIONS [None]
